FAERS Safety Report 7050533-7 (Version None)
Quarter: 2010Q4

REPORT INFORMATION
  Report Type: 
  Country: None (occurrence: None)
  Receive Date: 20101018
  Receipt Date: 20101008
  Transmission Date: 20110411
  Serious: Yes (Death, Hospitalization)
  Sender: FDA-Public Use
  Company Number: US-PFIZER INC-2010051856

PATIENT
  Sex: Male
  Weight: 99 kg

DRUGS (9)
  1. IRINOTECAN HCL [Suspect]
     Indication: ANAPLASTIC ASTROCYTOMA
     Dosage: 100MG/M2, 220 MG, ON D1 D15 D29
     Route: 042
     Dates: start: 20100402, end: 20100416
  2. SUNITINIB MALATE [Suspect]
     Indication: ANAPLASTIC ASTROCYTOMA
     Dosage: 50 MG, 1X/DAY 28DAYS
     Route: 048
     Dates: start: 20100402, end: 20100419
  3. DECADRON [Concomitant]
     Dosage: 10 MG, 2X/DAY
  4. LACOSAMIDE [Concomitant]
     Dosage: 100 MG, 2X/DAY
  5. KEPPRA [Concomitant]
     Dosage: 3000 MG, 2X/DAY
  6. LORAZEPAM [Concomitant]
     Dosage: 1 MG, AS NEEDED
  7. MAGIC MOUTHWASH [Concomitant]
  8. DIFLUCAN [Concomitant]
  9. VALTREX [Concomitant]

REACTIONS (5)
  - DEATH [None]
  - DEHYDRATION [None]
  - FATIGUE [None]
  - NEUTROPENIA [None]
  - STOMATITIS [None]
